FAERS Safety Report 14377466 (Version 2)
Quarter: 2018Q2

REPORT INFORMATION
  Report Type: Spontaneous
  Country: US (occurrence: US)
  Receive Date: 20180111
  Receipt Date: 20180409
  Transmission Date: 20180711
  Serious: Yes (Hospitalization, Other)
  Sender: FDA-Public Use
  Company Number: US-DSJP-DSU-2017-147221

PATIENT

DRUGS (2)
  1. BENICAR [Suspect]
     Active Substance: OLMESARTAN MEDOXOMIL
     Indication: PRODUCT USED FOR UNKNOWN INDICATION
     Dosage: 20 MG, QD
     Route: 048
     Dates: start: 20070101
  2. PERCOCET                           /00446701/ [Suspect]
     Active Substance: ACETAMINOPHEN\OXYCODONE HYDROCHLORIDE\OXYCODONE TEREPHTHALATE
     Indication: PRODUCT USED FOR UNKNOWN INDICATION
     Dosage: UNK

REACTIONS (11)
  - Sprue-like enteropathy [Recovering/Resolving]
  - Haemorrhoids [Unknown]
  - Large intestine polyp [Recovered/Resolved]
  - Hiatus hernia [Unknown]
  - Constipation [Unknown]
  - Cholecystitis chronic [Recovered/Resolved]
  - Rectal polyp [Unknown]
  - Large intestinal ulcer [Unknown]
  - Diverticulum [Unknown]
  - Diverticulitis [Not Recovered/Not Resolved]
  - Erosive oesophagitis [Unknown]

NARRATIVE: CASE EVENT DATE: 20100206
